FAERS Safety Report 5130447-X (Version None)
Quarter: 2006Q4

REPORT INFORMATION
  Report Type: 
  Country: None (occurrence: None)
  Receive Date: 20061013
  Receipt Date: 20060927
  Transmission Date: 20070319
  Serious: Yes (Disabling, Other)
  Sender: FDA-Public Use
  Company Number: US200609007035

PATIENT
  Age: 47 Year
  Sex: Female

DRUGS (2)
  1. HUMULIN N [Suspect]
  2. HUMULIN R [Suspect]
     Dosage: 2/D,

REACTIONS (13)
  - ACCIDENT AT WORK [None]
  - FINGER AMPUTATION [None]
  - FOOT DEFORMITY [None]
  - FOOT FRACTURE [None]
  - GENERAL PHYSICAL HEALTH DETERIORATION [None]
  - HEPATOCELLULAR DAMAGE [None]
  - HYPERKERATOSIS [None]
  - IMPAIRED WORK ABILITY [None]
  - NEUROPATHIC ARTHROPATHY [None]
  - NEUROPATHY [None]
  - ROAD TRAFFIC ACCIDENT [None]
  - THYROID DISORDER [None]
  - UPPER LIMB FRACTURE [None]
